FAERS Safety Report 12241364 (Version 4)
Quarter: 2016Q4

REPORT INFORMATION
  Report Type: Spontaneous
  Country: JP (occurrence: JP)
  Receive Date: 20160406
  Receipt Date: 20161209
  Transmission Date: 20170207
  Serious: Yes (Death)
  Sender: FDA-Public Use
  Company Number: JP-MALLINCKRODT-T201403498

PATIENT
  Age: 41 Year
  Sex: Male
  Weight: 45 kg

DRUGS (43)
  1. METHADONE [Suspect]
     Active Substance: METHADONE HYDROCHLORIDE
     Dosage: 55 MG DAILY DOSE
     Route: 048
     Dates: start: 20150206, end: 20150219
  2. METHADONE [Suspect]
     Active Substance: METHADONE HYDROCHLORIDE
     Dosage: 10 MG (30 MG DAILY DOSE)
     Route: 048
     Dates: start: 20150320, end: 20150324
  3. BIO-THREE [Concomitant]
     Active Substance: HERBALS
     Dosage: 6 DF
     Route: 048
     Dates: start: 20120706, end: 20150325
  4. TS-1 [Concomitant]
     Active Substance: GIMERACIL\OTERACIL\TEGAFUR
     Dosage: 80 MG
     Route: 048
     Dates: start: 20141003, end: 20141016
  5. ALOXI [Concomitant]
     Active Substance: PALONOSETRON HYDROCHLORIDE
     Dosage: 0.75 MG
     Route: 051
     Dates: start: 20140711, end: 20150310
  6. LYRICA [Concomitant]
     Active Substance: PREGABALIN
     Dosage: 150 MG
     Route: 048
     Dates: start: 20140705, end: 20150325
  7. NAIXAN [Concomitant]
     Active Substance: NAPROXEN SODIUM
     Dosage: 300 MG
     Route: 048
     Dates: start: 20131023, end: 20141225
  8. TS-1 [Concomitant]
     Active Substance: GIMERACIL\OTERACIL\TEGAFUR
     Indication: RECTAL CANCER
     Dosage: 80 MG
     Route: 048
     Dates: start: 20140711, end: 20140724
  9. VECTIBIX [Concomitant]
     Active Substance: PANITUMUMAB
     Dosage: 277.8 MG
     Route: 051
     Dates: start: 20140711, end: 20150116
  10. CYMBALTA [Concomitant]
     Active Substance: DULOXETINE HYDROCHLORIDE
     Indication: ANALGESIC THERAPY
     Dosage: 40 MG
     Route: 048
     Dates: start: 20150116, end: 20150129
  11. AVASTIN [Concomitant]
     Active Substance: BEVACIZUMAB
     Dosage: 253.8 MG
     Route: 051
     Dates: start: 20150310, end: 20150310
  12. MORPHINE HYDROCHLORIDE [Concomitant]
     Active Substance: MORPHINE HYDROCHLORIDE
     Dosage: 2.9-5.8 MG, PRN
     Route: 051
     Dates: start: 20140702, end: 20140707
  13. MORPHINE HYDROCHLORIDE [Concomitant]
     Active Substance: MORPHINE HYDROCHLORIDE
     Dosage: 35 MG
     Route: 051
     Dates: start: 20140706, end: 20140707
  14. TS-1 [Concomitant]
     Active Substance: GIMERACIL\OTERACIL\TEGAFUR
     Dosage: 80 MG
     Route: 048
     Dates: start: 20141031, end: 20150108
  15. METHADONE [Suspect]
     Active Substance: METHADONE HYDROCHLORIDE
     Indication: CANCER PAIN
     Dosage: 10 MG (30 MG DAILY DOSE)
     Route: 048
     Dates: start: 20140703, end: 20140709
  16. METHADONE [Suspect]
     Active Substance: METHADONE HYDROCHLORIDE
     Dosage: 15 MG (45 MG DAILY DOSE)
     Route: 048
     Dates: start: 20140710, end: 20140904
  17. METHADONE [Suspect]
     Active Substance: METHADONE HYDROCHLORIDE
     Dosage: 10 MG (30 MG DAILY DOSE)
     Route: 048
     Dates: start: 20140905, end: 20150115
  18. METHADONE [Suspect]
     Active Substance: METHADONE HYDROCHLORIDE
     Dosage: 15 MG (45 MG DAILY DOSE)
     Route: 048
     Dates: start: 20150313, end: 20150319
  19. ZOFRAN [Concomitant]
     Active Substance: ONDANSETRON HYDROCHLORIDE
     Dosage: 4 MG
     Route: 048
     Dates: start: 20130906, end: 20141007
  20. VFEND [Concomitant]
     Active Substance: VORICONAZOLE
     Dosage: 400 MG
     Route: 048
     Dates: start: 20131226, end: 20150325
  21. TS-1 [Concomitant]
     Active Substance: GIMERACIL\OTERACIL\TEGAFUR
     Dosage: 80 MG
     Route: 048
     Dates: start: 20140808, end: 20140821
  22. OXINORM [Concomitant]
     Active Substance: OXYCODONE HYDROCHLORIDE
     Dosage: 20 MG, PRN
     Route: 048
     Dates: start: 20140707
  23. BISOLVON [Concomitant]
     Active Substance: BROMHEXINE HYDROCHLORIDE
     Dosage: 12 MG
     Route: 048
     Dates: start: 20130531, end: 20141225
  24. MAGMITT [Concomitant]
     Active Substance: MAGNESIUM OXIDE
     Dosage: 1500 MG
     Route: 048
     Dates: start: 20131020, end: 20150325
  25. TOPOTECIN [Concomitant]
     Active Substance: IRINOTECAN HYDROCHLORIDE
     Dosage: 87 MG
     Route: 051
     Dates: start: 20140711, end: 20150116
  26. MAGNESIUM SULFATE. [Concomitant]
     Active Substance: MAGNESIUM SULFATE
     Dosage: 20 MEQ
     Route: 051
     Dates: start: 20140711, end: 20150116
  27. XELODA [Concomitant]
     Active Substance: CAPECITABINE
     Dosage: 2400 MG
     Route: 048
     Dates: start: 20150310, end: 20150323
  28. MORPHINE HYDROCHLORIDE [Concomitant]
     Active Substance: MORPHINE HYDROCHLORIDE
     Dosage: 140 MG
     Route: 051
     Dates: start: 20140702, end: 20140703
  29. MORPHINE HYDROCHLORIDE [Concomitant]
     Active Substance: MORPHINE HYDROCHLORIDE
     Dosage: 70 MG
     Route: 051
     Dates: start: 20140703, end: 20140705
  30. CODEINE PHOSPHATE [Concomitant]
     Active Substance: CODEINE PHOSPHATE
     Dosage: 120 MG
     Route: 048
     Dates: start: 20130215, end: 20150325
  31. NAUZELIN [Concomitant]
     Active Substance: DOMPERIDONE
     Dosage: 30 MG
     Route: 048
     Dates: start: 20140404, end: 20141225
  32. DEXART [Concomitant]
     Active Substance: DEXAMETHASONE SODIUM PHOSPHATE
     Dosage: 6.6 MG
     Route: 051
     Dates: start: 20140711, end: 20150329
  33. DECADRON [Concomitant]
     Active Substance: DEXAMETHASONE
     Dosage: 4 MG
     Route: 048
     Dates: start: 20150311, end: 20150312
  34. METHADONE [Suspect]
     Active Substance: METHADONE HYDROCHLORIDE
     Dosage: 10 MG (40 MG DAILY DOSE)
     Route: 048
     Dates: start: 20150116, end: 20150205
  35. CELECOX [Concomitant]
     Active Substance: CELECOXIB
     Dosage: 200 MG
     Route: 048
     Dates: start: 20121116, end: 20150325
  36. TAKEPRON [Concomitant]
     Active Substance: LANSOPRAZOLE
     Dosage: 30 MG
     Route: 048
     Dates: start: 20131203, end: 20150325
  37. MINOCYCLINE HCL [Concomitant]
     Active Substance: MINOCYCLINE HYDROCHLORIDE
     Dosage: 100 MG
     Route: 048
     Dates: end: 20150129
  38. FERROUS CITRATE [Concomitant]
     Active Substance: FERROUS CITRATE
     Dosage: 50 MG
     Route: 048
     Dates: start: 20141017, end: 20150129
  39. METHADONE [Suspect]
     Active Substance: METHADONE HYDROCHLORIDE
     Dosage: 20 MG (60 MG DAILY DOSE)
     Route: 048
     Dates: start: 20150220, end: 20150312
  40. TS-1 [Concomitant]
     Active Substance: GIMERACIL\OTERACIL\TEGAFUR
     Dosage: 80 MG
     Route: 048
     Dates: start: 20140905, end: 20140918
  41. CALCIUM CHLORIDE. [Concomitant]
     Active Substance: CALCIUM CHLORIDE
     Dosage: 20 MEQ
     Route: 051
     Dates: start: 20140711, end: 20150116
  42. FEROTYM [Concomitant]
     Active Substance: FERROUS CITRATE\SODIUM
     Dosage: 100 MG
     Route: 048
     Dates: start: 20141003, end: 20141016
  43. ELPLAT [Concomitant]
     Active Substance: OXALIPLATIN
     Dosage: 146.02 MG
     Route: 051
     Dates: start: 20150310, end: 20150310

REACTIONS (5)
  - Rectal cancer [Fatal]
  - Hallucination [Not Recovered/Not Resolved]
  - Hypertension [Recovered/Resolved]
  - Sputum increased [Not Recovered/Not Resolved]
  - Somnolence [Not Recovered/Not Resolved]

NARRATIVE: CASE EVENT DATE: 20140703
